FAERS Safety Report 10312968 (Version 1)
Quarter: 2014Q3

REPORT INFORMATION
  Report Type: Spontaneous
  Country: FR (occurrence: None)
  Receive Date: 20140716
  Receipt Date: 20140716
  Transmission Date: 20150326
  Serious: Yes (Hospitalization)
  Sender: FDA-Public Use
  Company Number: AG-2014-003133

PATIENT
  Age: 74 Year
  Sex: Female
  Weight: 58 kg

DRUGS (1)
  1. ARIXTRA [Suspect]
     Active Substance: FONDAPARINUX SODIUM
     Indication: DEEP VEIN THROMBOSIS
     Dosage: 7.5 MG (UNKNOWN, UNKNOWN), SUBCUTANEOUS
     Route: 058
     Dates: start: 20140407, end: 20140517

REACTIONS (4)
  - Pulmonary embolism [None]
  - No therapeutic response [None]
  - Blood pressure increased [None]
  - Incorrect drug administration duration [None]

NARRATIVE: CASE EVENT DATE: 20140516
